FAERS Safety Report 6581071-3 (Version None)
Quarter: 2010Q1

REPORT INFORMATION
  Report Type: 
  Country: None (occurrence: None)
  Receive Date: 20100215
  Receipt Date: 20100203
  Transmission Date: 20100710
  Serious: Yes (Death, Other)
  Sender: FDA-Public Use
  Company Number: PHHY2010JP07186

PATIENT
  Sex: Female

DRUGS (12)
  1. ICL670A ICL+DISTAB [Suspect]
     Indication: IRON OVERLOAD
     Dosage: 500 MG DAILY
     Route: 048
     Dates: start: 20090811, end: 20090824
  2. ZYLORIC [Concomitant]
     Indication: HEPATITIS C
     Dosage: 100 MG DAILY
     Route: 048
     Dates: start: 20090824, end: 20091219
  3. GASTER D [Concomitant]
     Indication: HEPATITIS C
     Dosage: 40 MG DAILY
     Route: 048
     Dates: start: 20090824, end: 20091219
  4. MUCOSTA [Concomitant]
     Indication: HEPATITIS C
     Dosage: 300 MG DAILY
     Route: 048
     Dates: start: 20090824, end: 20091219
  5. URSO 250 [Concomitant]
     Indication: HEPATITIS C
     Dosage: 300 MG DAILY
     Route: 048
     Dates: start: 20090918, end: 20091219
  6. LASIX [Concomitant]
     Indication: HEPATITIS C
     Dosage: 20 MG DAILY
     Route: 048
     Dates: start: 20091102, end: 20091217
  7. OLMETEC [Concomitant]
     Indication: HEPATITIS C
     Dosage: 20 MG DAILY
     Route: 048
     Dates: start: 20090918, end: 20091029
  8. DAUNOMYCIN [Concomitant]
     Indication: MYELODYSPLASTIC SYNDROME
     Dosage: 40 MG DAILY
     Dates: start: 20090826
  9. CYLOCIDE [Concomitant]
     Indication: MYELODYSPLASTIC SYNDROME
     Dosage: 60 MG DAILY
     Dates: start: 20090826
  10. RED BLOOD CELLS [Concomitant]
     Dosage: 2 U, EVERY 2 WEEKS
     Dates: start: 20090811, end: 20090830
  11. RED BLOOD CELLS [Concomitant]
     Dosage: 2 U, QW
     Dates: start: 20090901, end: 20090930
  12. RED BLOOD CELLS [Concomitant]
     Dosage: 2 U, QW2
     Dates: start: 20091001, end: 20091201

REACTIONS (3)
  - DISEASE PROGRESSION [None]
  - MYELODYSPLASTIC SYNDROME [None]
  - WHITE BLOOD CELL COUNT DECREASED [None]
